FAERS Safety Report 20447274 (Version 2)
Quarter: 2022Q1

REPORT INFORMATION
  Report Type: Spontaneous
  Country: FR (occurrence: FR)
  Receive Date: 20220209
  Receipt Date: 20220217
  Transmission Date: 20220423
  Serious: Yes (Other)
  Sender: FDA-Public Use
  Company Number: FR-AFSSAPS-AVLY20220029

PATIENT
  Age: 20 Year
  Sex: Female

DRUGS (7)
  1. QUETIAPINE [Suspect]
     Active Substance: QUETIAPINE
     Indication: Product used for unknown indication
     Dosage: 300 MILLIGRAM, ONCE A DAY(2 TABLETS/DAY)
     Route: 048
     Dates: start: 20220107
  2. QUETIAPINE [Suspect]
     Active Substance: QUETIAPINE
     Dosage: 300 MILLIGRAM(3 OR 5 TABLETS (BY NASAL ROUTE) REPORTED, MOST RECENT DOSE PRIOR TO AE 11/JAN/2022)
     Route: 045
     Dates: start: 20220110, end: 20220111
  3. CANNABIS SATIVA SUBSP. INDICA TOP [Suspect]
     Active Substance: CANNABIS SATIVA SUBSP. INDICA TOP
     Indication: Product used for unknown indication
     Dosage: 2 SEALS/DAY
     Route: 055
  4. COCAINE [Suspect]
     Active Substance: COCAINE
     Indication: Product used for unknown indication
     Dosage: 1 TRACE EVERY 3 HOURS, 1-2G/DAY
     Route: 045
  5. COCAINE [Suspect]
     Active Substance: COCAINE
     Dosage: 1 TRACE OR 1 GRAM ANNOUNCED,  MOST RECENT DOSE PRIOR TO AE 11/JAN/2022
     Route: 045
     Dates: start: 20220111, end: 20220111
  6. VALIUM [Suspect]
     Active Substance: DIAZEPAM
     Indication: Product used for unknown indication
     Dosage: 10 MILLIGRAM, ONCE A DAY(8 TABLETS/DAY)
     Route: 048
  7. VALIUM [Suspect]
     Active Substance: DIAZEPAM
     Dosage: 10 MILLIGRAM(12 TABLETS REPORTED)
     Route: 065
     Dates: start: 20220110, end: 20220111

REACTIONS (3)
  - Substance abuse [Unknown]
  - Dysarthria [Recovered/Resolved]
  - Intentional product misuse [Unknown]

NARRATIVE: CASE EVENT DATE: 20220111
